FAERS Safety Report 22624453 (Version 1)
Quarter: 2023Q2

REPORT INFORMATION
  Report Type: Spontaneous
  Country: FR (occurrence: FR)
  Receive Date: 20230621
  Receipt Date: 20230621
  Transmission Date: 20230722
  Serious: Yes (Hospitalization)
  Sender: FDA-Public Use
  Company Number: None

PATIENT
  Age: 80 Year
  Sex: Female
  Weight: 70 kg

DRUGS (1)
  1. TRAMADOL [Suspect]
     Active Substance: TRAMADOL
     Indication: Arthralgia
     Dosage: UNK (UNSPECIFIED)
     Route: 048

REACTIONS (4)
  - Hallucination [Recovered/Resolved]
  - Aggression [Recovered/Resolved]
  - Disorientation [Recovered/Resolved]
  - Depression [Recovered/Resolved]
